FAERS Safety Report 5316874-6 (Version None)
Quarter: 2007Q2

REPORT INFORMATION
  Report Type: 
  Country: None (occurrence: None)
  Receive Date: 20070504
  Receipt Date: 20070502
  Transmission Date: 20071010
  Serious: Yes (Death)
  Sender: FDA-Public Use
  Company Number: US-GLAXOSMITHKLINE-A0649699A

PATIENT
  Age: 35 Year
  Sex: Male

DRUGS (5)
  1. LAMICTAL [Suspect]
     Indication: BIPOLAR DISORDER
     Dosage: 100MG PER DAY
     Route: 048
     Dates: start: 20061101, end: 20070213
  2. PROVIGIL [Concomitant]
  3. GEODON [Concomitant]
  4. TOPAMAX [Concomitant]
  5. COLACE [Concomitant]

REACTIONS (1)
  - OVERDOSE [None]
